FAERS Safety Report 9385787 (Version 2)
Quarter: 2023Q4

REPORT INFORMATION
  Report Type: Spontaneous
  Country: SE (occurrence: None)
  Receive Date: 20130705
  Receipt Date: 20231208
  Transmission Date: 20240110
  Serious: Yes (Life-Threatening, Hospitalization)
  Sender: FDA-Public Use
  Company Number: 2013SE50634

PATIENT
  Age: 42 Year
  Sex: Female

DRUGS (1)
  1. SEROQUEL [Suspect]
     Active Substance: QUETIAPINE FUMARATE
     Dosage: 24 GRAMS
     Route: 048

REACTIONS (4)
  - Overdose [Recovered/Resolved]
  - Circulatory collapse [Recovered/Resolved]
  - Neuroleptic malignant syndrome [Recovered/Resolved]
  - Coma [Recovered/Resolved]
